FAERS Safety Report 13888051 (Version 1)
Quarter: 2017Q3

REPORT INFORMATION
  Report Type: Spontaneous
  Country: DE (occurrence: DE)
  Receive Date: 20170821
  Receipt Date: 20170821
  Transmission Date: 20171127
  Serious: Yes (Other)
  Sender: FDA-Public Use
  Company Number: DE-PFIZER INC-2017357688

PATIENT
  Age: 60 Year
  Sex: Female

DRUGS (1)
  1. LYRICA [Suspect]
     Active Substance: PREGABALIN
     Indication: TENDON RUPTURE
     Dosage: UNK UNK, 2X/DAY (150 MG MORNING, 300 MG EVENING)
     Dates: start: 2007

REACTIONS (4)
  - Liver function test abnormal [Unknown]
  - Product use in unapproved indication [Unknown]
  - Renal function test abnormal [Unknown]
  - Diabetes mellitus [Unknown]
